FAERS Safety Report 24204955 (Version 1)
Quarter: 2024Q3

REPORT INFORMATION
  Report Type: Report from Study
  Country: US (occurrence: US)
  Receive Date: 20240813
  Receipt Date: 20240813
  Transmission Date: 20241016
  Serious: Yes (Hospitalization, Other)
  Sender: ROCHE
  Company Number: US-ROCHE-10000033768

PATIENT
  Age: 72 Year
  Sex: Male

DRUGS (18)
  1. ACTEMRA ACTPEN [Suspect]
     Active Substance: TOCILIZUMAB
     Indication: Giant cell arteritis
     Dosage: INJECT 0.9ML SUBCUTANEOUSLY EVERY WEEK
     Route: 058
     Dates: start: 202404
  2. BUPRENORPHINE [Concomitant]
     Active Substance: BUPRENORPHINE
     Dosage: PLACE 1 PATCH ON THE SKIN 1 (ONE) TIME PER ?WEEK.
     Dates: start: 20240620
  3. FERROUS SULFATE [Concomitant]
     Active Substance: FERROUS SULFATE
     Route: 048
     Dates: start: 20240616
  4. MELATONIN [Concomitant]
     Active Substance: MELATONIN
     Dosage: TAKE 2 TABLETS (6 MG TOTAL) BY MOUTH AT BEDTIME.
     Route: 048
  5. METHOCARBAMOL [Concomitant]
     Active Substance: METHOCARBAMOL
     Indication: Muscle spasms
     Dosage: 3 (FREE) TIMES A DAY IF NEEDED
     Route: 048
  6. OXYCODONE [Concomitant]
     Active Substance: OXYCODONE
     Indication: Pain
     Dosage: 1-2 TABLET AS NEEDED
  7. METOPROLOL SUCCINATE [Concomitant]
     Active Substance: METOPROLOL SUCCINATE
     Route: 048
  8. PREDNISONE [Concomitant]
     Active Substance: PREDNISONE
     Dosage: TAKE 5 TABLETS (50 MG TOTAL) BY MOUTH 1 (ONE) TIME EACH DAY,
     Route: 048
  9. ASCORBIC ACID [Concomitant]
     Active Substance: ASCORBIC ACID
     Route: 048
  10. CHOLECALCIFEROL [Concomitant]
     Active Substance: CHOLECALCIFEROL
     Dosage: TAKE 1 TABLET (1000 UNITS TOTAL)
     Route: 048
  11. FEBUXOSTAT [Concomitant]
     Active Substance: FEBUXOSTAT
     Route: 048
  12. PANTOPRAZOLE [Concomitant]
     Active Substance: PANTOPRAZOLE
     Route: 048
  13. PYRIDOXINE [Concomitant]
     Active Substance: PYRIDOXINE
     Route: 048
  14. SULFAMETHOXAZOLE\TRIMETHOPRIM [Concomitant]
     Active Substance: SULFAMETHOXAZOLE\TRIMETHOPRIM
     Dosage: 800 TO 160 MG PER TABLET
     Route: 048
  15. ACETAMINOPHEN\HYDROCODONE [Concomitant]
     Active Substance: ACETAMINOPHEN\HYDROCODONE
     Dosage: 10-325 MG PER TABIET
  16. LOSARTAN [Concomitant]
     Active Substance: LOSARTAN\LOSARTAN POTASSIUM
  17. TORSEMIDE [Concomitant]
     Active Substance: TORSEMIDE
  18. HUMIRA [Concomitant]
     Active Substance: ADALIMUMAB

REACTIONS (27)
  - Fall [Unknown]
  - Nausea [Unknown]
  - Muscular weakness [Unknown]
  - Pain [Unknown]
  - Granulomatous liver disease [Unknown]
  - Dehydration [Unknown]
  - Iron deficiency anaemia [Unknown]
  - Brain scan abnormal [Unknown]
  - Pleocytosis [Unknown]
  - Hypotension [Unknown]
  - Hyperkalaemia [Unknown]
  - Vertigo [Unknown]
  - Gastritis [Unknown]
  - Chronic obstructive pulmonary disease [Unknown]
  - Chronic left ventricular failure [Unknown]
  - Obstructive sleep apnoea syndrome [Unknown]
  - Essential hypertension [Unknown]
  - Asthenia [Unknown]
  - Insomnia [Unknown]
  - Sinus node dysfunction [Unknown]
  - Atrial fibrillation [Unknown]
  - Acute kidney injury [Unknown]
  - Asthma-chronic obstructive pulmonary disease overlap syndrome [Unknown]
  - Chronic left ventricular failure [Unknown]
  - Type V hyperlipidaemia [Unknown]
  - Rheumatoid arthritis [Unknown]
  - Guillain-Barre syndrome [Unknown]
